FAERS Safety Report 21375138 (Version 1)
Quarter: 2022Q3

REPORT INFORMATION
  Report Type: Spontaneous
  Country: US (occurrence: US)
  Receive Date: 20220926
  Receipt Date: 20220926
  Transmission Date: 20221027
  Serious: No
  Sender: FDA-Public Use
  Company Number: ALC2021US006117

PATIENT
  Sex: Male

DRUGS (2)
  1. NAPHCON A [Suspect]
     Active Substance: NAPHAZOLINE HYDROCHLORIDE\PHENIRAMINE MALEATE
     Indication: Product used for unknown indication
     Dosage: 2 DRP IN LEFT EYE
     Route: 047
  2. NAPHCON A [Suspect]
     Active Substance: NAPHAZOLINE HYDROCHLORIDE\PHENIRAMINE MALEATE
     Dosage: 6 DRP IN RIGHT EYE
     Route: 047

REACTIONS (1)
  - Anisocoria [Not Recovered/Not Resolved]

NARRATIVE: CASE EVENT DATE: 20211105
